FAERS Safety Report 11620168 (Version 2)
Quarter: 2015Q4

REPORT INFORMATION
  Report Type: Spontaneous
  Country: US (occurrence: US)
  Receive Date: 20151012
  Receipt Date: 20151015
  Transmission Date: 20160304
  Serious: No
  Sender: FDA-Public Use
  Company Number: US-SA-2015SA134346

PATIENT
  Age: 80 Year
  Sex: Female

DRUGS (2)
  1. AFREZZA [Suspect]
     Active Substance: INSULIN HUMAN
     Dosage: ROUTE: IHALATIONAL?FREQUENCY: WITH BREAKFAST AND SUPPER DOSE:4 UNIT(S)
     Dates: start: 201505
  2. AFREZZA [Suspect]
     Active Substance: INSULIN HUMAN
     Dosage: FREQUENCY: 4 UNITS WITH BREAKFAST AND 8 UNITS WITH BOTH LUNCH AND SUPPER
     Dates: start: 201506, end: 20150827

REACTIONS (3)
  - Cough [Recovering/Resolving]
  - Hypersensitivity [Recovering/Resolving]
  - Dysgeusia [Recovering/Resolving]

NARRATIVE: CASE EVENT DATE: 201507
